FAERS Safety Report 16963369 (Version 1)
Quarter: 2019Q4

REPORT INFORMATION
  Report Type: Spontaneous
  Country: US (occurrence: US)
  Receive Date: 20191025
  Receipt Date: 20191025
  Transmission Date: 20200122
  Serious: No
  Sender: FDA-Public Use
  Company Number: US-ASTRAZENECA-2019SF48449

PATIENT
  Sex: Male
  Weight: 149.7 kg

DRUGS (10)
  1. MOVANTIK [Suspect]
     Active Substance: NALOXEGOL OXALATE
     Indication: CONSTIPATION
     Route: 048
     Dates: start: 20190930, end: 20191014
  2. LEVOTHYROXINE. [Concomitant]
     Active Substance: LEVOTHYROXINE
     Indication: BLOOD PARATHYROID HORMONE DECREASED
  3. ALLOPURINOL. [Concomitant]
     Active Substance: ALLOPURINOL
     Indication: NEUROPATHY PERIPHERAL
  4. POTASSIUM [Concomitant]
     Active Substance: POTASSIUM
  5. OXYCODONE AND ACETAMINOPHEN [Concomitant]
     Active Substance: ACETAMINOPHEN\OXYCODONE HYDROCHLORIDE
  6. FUROSEMIDE. [Concomitant]
     Active Substance: FUROSEMIDE
  7. ELIQUIS CLOPIDOGREL [Concomitant]
  8. RANITIDINE. [Concomitant]
     Active Substance: RANITIDINE
  9. CARVEDILOL. [Concomitant]
     Active Substance: CARVEDILOL
  10. LYRICA [Concomitant]
     Active Substance: PREGABALIN
     Indication: BLOOD PRESSURE ABNORMAL

REACTIONS (11)
  - Anger [Unknown]
  - Irritability [Unknown]
  - Cerebral disorder [Unknown]
  - Neuropathy peripheral [Unknown]
  - Glucose tolerance impaired [Unknown]
  - Behaviour disorder [Unknown]
  - Blood pressure abnormal [Unknown]
  - Hypothyroidism [Unknown]
  - Increased appetite [Unknown]
  - Constipation [Unknown]
  - Body fat disorder [Unknown]
